FAERS Safety Report 4822530-0 (Version None)
Quarter: 2005Q4

REPORT INFORMATION
  Report Type: 
  Country: None (occurrence: None)
  Receive Date: 20051108
  Receipt Date: 20051027
  Transmission Date: 20060501
  Serious: Yes (Other)
  Sender: FDA-Public Use
  Company Number: US-JNJFOC-20050906862

PATIENT
  Sex: Female

DRUGS (5)
  1. REMICADE [Suspect]
     Indication: RHEUMATOID ARTHRITIS
     Dosage: ^FOUR VIALS^
     Route: 042
  2. METHOTREXATE [Concomitant]
     Dates: start: 20021212, end: 20050104
  3. CELEBREX [Concomitant]
     Dates: start: 19990518
  4. PROTONIX [Concomitant]
  5. FOSAMAX [Concomitant]
     Indication: OSTEOPENIA

REACTIONS (1)
  - BREAST CANCER [None]
